FAERS Safety Report 21628073 (Version 1)
Quarter: 2022Q4

REPORT INFORMATION
  Report Type: Spontaneous
  Country: US (occurrence: US)
  Receive Date: 20221122
  Receipt Date: 20221122
  Transmission Date: 20230113
  Serious: No
  Sender: FDA-Public Use
  Company Number: US-PFIZER INC-202201300576

PATIENT
  Age: 52 Year
  Sex: Female
  Weight: 63.05 kg

DRUGS (6)
  1. LEVOXYL [Suspect]
     Active Substance: LEVOTHYROXINE SODIUM
     Indication: Thyroid disorder
     Dosage: UNK (COMBINATION OF LEVOXYL, 75 MCG AND 88 MCG)
  2. LEVOXYL [Suspect]
     Active Substance: LEVOTHYROXINE SODIUM
     Dosage: 75MCG EVERY OTHER DAY; OTHER DAYS 1/2 OF 75MCG AND 1/2 OF AN 88MCG FOR A TOTAL OF 81.5MCG
     Route: 048
     Dates: start: 20221107
  3. LEVOXYL [Suspect]
     Active Substance: LEVOTHYROXINE SODIUM
     Dosage: 75MCG EVERY OTHER DAY; OTHER DAYS 1/2 OF 75MCG AND 1/2 OF AN 88MCG FOR A TOTAL OF 81.5MCG
     Route: 048
     Dates: start: 20221107
  4. LEVOTHYROXINE SODIUM [Suspect]
     Active Substance: LEVOTHYROXINE SODIUM
     Dosage: 100 UG
  5. LEVOTHYROXINE SODIUM [Suspect]
     Active Substance: LEVOTHYROXINE SODIUM
     Dosage: 88 UG
  6. LEVOTHYROXINE SODIUM [Suspect]
     Active Substance: LEVOTHYROXINE SODIUM
     Dosage: 75 UG

REACTIONS (1)
  - Blood thyroid stimulating hormone abnormal [Not Recovered/Not Resolved]
